FAERS Safety Report 6653344-7 (Version None)
Quarter: 2010Q1

REPORT INFORMATION
  Report Type: 
  Country: None (occurrence: None)
  Receive Date: 20100326
  Receipt Date: 20100305
  Transmission Date: 20100710
  Serious: Yes (Hospitalization, Other)
  Sender: FDA-Public Use
  Company Number: PHHY2010US06127

PATIENT
  Sex: Female

DRUGS (2)
  1. EXJADE [Suspect]
     Indication: HAEMOCHROMATOSIS
     Dosage: 1250 MG DAILY
     Route: 048
  2. EXJADE [Suspect]
     Indication: SERUM FERRITIN INCREASED

REACTIONS (8)
  - BACK DISORDER [None]
  - BLOOD IRON INCREASED [None]
  - CELLULITIS [None]
  - NAUSEA [None]
  - STAPHYLOCOCCAL INFECTION [None]
  - SURGERY [None]
  - URINARY TRACT INFECTION [None]
  - VOMITING [None]
